FAERS Safety Report 10151336 (Version 1)
Quarter: 2014Q2

REPORT INFORMATION
  Report Type: Spontaneous
  Country: US (occurrence: ES)
  Receive Date: 20140504
  Receipt Date: 20140504
  Transmission Date: 20141212
  Serious: Yes (Hospitalization)
  Sender: FDA-Public Use
  Company Number: 2014SP002433

PATIENT
  Age: 73 Year
  Sex: Female

DRUGS (9)
  1. CISPLATIN [Suspect]
     Indication: BLADDER CANCER
     Route: 042
     Dates: start: 20130619, end: 20131016
  2. GEMCITABINE HYDROCHLORIDE [Suspect]
     Indication: BLADDER CANCER
     Route: 042
     Dates: start: 20130619, end: 20131016
  3. ERIBULIN MESILATE [Suspect]
     Indication: BLADDER CANCER
     Route: 042
     Dates: start: 20130619, end: 20131016
  4. ENALAPRIL [Concomitant]
  5. HYDROCHLOROTHIAZIDE [Concomitant]
  6. OMEPRAZOLE [Concomitant]
  7. MAGNESIUM [Concomitant]
  8. ACETYLSALICYLIC ACID [Concomitant]
  9. ATORVASTATIN [Concomitant]

REACTIONS (3)
  - Febrile neutropenia [Recovered/Resolved]
  - Chills [Recovered/Resolved]
  - Transient ischaemic attack [Recovered/Resolved]
